FAERS Safety Report 8024034-3 (Version None)
Quarter: 2012Q1

REPORT INFORMATION
  Report Type: 
  Country: None (occurrence: None)
  Receive Date: 20120105
  Receipt Date: 20111229
  Transmission Date: 20120608
  Serious: Yes (Hospitalization)
  Sender: FDA-Public Use
  Company Number: CA-BRISTOL-MYERS SQUIBB COMPANY-16017519

PATIENT
  Age: 69 Year
  Sex: Female

DRUGS (13)
  1. ESTROGENIC SUBSTANCE [Concomitant]
  2. HYDROCHLOROTHIAZIDE [Concomitant]
  3. RAMIPRIL [Concomitant]
  4. VITAMIN B-12 [Concomitant]
  5. ORENCIA [Suspect]
     Indication: RHEUMATOID ARTHRITIS
     Dosage: LAST DOSE ON 25AUG11,INF:2
     Route: 042
     Dates: start: 20110801, end: 20110801
  6. ALENDRONATE SODIUM [Concomitant]
  7. LEVOTHYROXINE SODIUM [Concomitant]
  8. LOVASTATIN [Concomitant]
  9. DORIPENEM MONOHYDRATE [Concomitant]
  10. DIAZEPAM [Concomitant]
  11. DOMPERIDONE [Concomitant]
  12. LANSOPRAZOLE [Concomitant]
  13. FOLIC ACID [Concomitant]

REACTIONS (7)
  - HYPOTENSION [None]
  - DIZZINESS [None]
  - NAUSEA [None]
  - DYSPNOEA [None]
  - HERPES ZOSTER [None]
  - MALAISE [None]
  - CYSTITIS [None]
